FAERS Safety Report 8710644 (Version 2)
Quarter: 2013Q4

REPORT INFORMATION
  Report Type: Spontaneous
  Country: US (occurrence: US)
  Receive Date: 20120807
  Receipt Date: 20131101
  Transmission Date: 20140711
  Serious: No
  Sender: FDA-Public Use
  Company Number: US-009507513-1207USA002074

PATIENT
  Age: 40 Year
  Sex: Male

DRUGS (3)
  1. SAPHRIS [Suspect]
     Indication: SCHIZOPHRENIA
     Dosage: 5MG IN MORNING, 10MG AT NIGHT
  2. KLONOPIN [Concomitant]
  3. RISPERDAL [Concomitant]

REACTIONS (1)
  - Restless legs syndrome [Recovering/Resolving]
